FAERS Safety Report 8624357-0 (Version None)
Quarter: 2012Q3

REPORT INFORMATION
  Report Type: 
  Country: None (occurrence: None)
  Receive Date: 20120827
  Receipt Date: 20120821
  Transmission Date: 20120928
  Serious: Yes (Life-Threatening, Hospitalization, Other)
  Sender: FDA-Public Use
  Company Number: JP-CELGENEUS-087-50794-12021032

PATIENT
  Age: 78 Year
  Sex: Male
  Weight: 71 kg

DRUGS (13)
  1. PLATELETS [Concomitant]
     Route: 041
  2. FLIVAS OD [Concomitant]
     Route: 065
  3. ZOLPIDEM [Concomitant]
     Route: 065
  4. LEVOFLOXACIN [Concomitant]
     Route: 065
  5. MEROPENEM [Concomitant]
     Route: 065
     Dates: start: 20111020
  6. VIDAZA [Suspect]
     Indication: MYELODYSPLASTIC SYNDROME
     Dosage: 75 MILLIGRAM/SQ. METER
     Route: 041
     Dates: start: 20111018, end: 20111022
  7. GRAN [Concomitant]
     Route: 065
     Dates: start: 20111020
  8. GRAN [Concomitant]
     Route: 065
     Dates: start: 20111023
  9. MEROPENEM [Concomitant]
     Route: 065
     Dates: start: 20111020
  10. FLUCONAZOLE [Concomitant]
     Route: 065
  11. OMEPRAZOLE [Concomitant]
     Route: 065
  12. RED BLOOD CELLS [Concomitant]
     Route: 041
  13. SALAGEN [Concomitant]
     Route: 065

REACTIONS (2)
  - FEBRILE NEUTROPENIA [None]
  - NEUTROPHIL COUNT DECREASED [None]
